FAERS Safety Report 5576036-4 (Version None)
Quarter: 2007Q4

REPORT INFORMATION
  Report Type: 
  Country: None (occurrence: None)
  Receive Date: 20071228
  Receipt Date: 20071023
  Transmission Date: 20080405
  Serious: No
  Sender: FDA-Public Use
  Company Number: A0689241A

PATIENT
  Age: 79 Year
  Sex: Female

DRUGS (17)
  1. ADVAIR DISKUS 100/50 [Suspect]
     Indication: BRONCHITIS
     Dosage: 2PUFF TWICE PER DAY
     Route: 055
     Dates: start: 20070927, end: 20071011
  2. COMBIVENT [Concomitant]
  3. COUMADIN [Concomitant]
  4. DIOVAN [Concomitant]
  5. LANOXIN [Concomitant]
  6. LASIX [Concomitant]
  7. PREMARIN [Concomitant]
  8. VERAPAMIL [Concomitant]
  9. FLORINEF [Concomitant]
  10. VALIUM [Concomitant]
  11. MILK OF MAGNESIUM [Concomitant]
  12. ASCORBIC ACID [Concomitant]
  13. FERROUS GLUCONATE [Concomitant]
  14. VITAMIN [Concomitant]
  15. VITAMIN B6 [Concomitant]
  16. BIOTIN [Concomitant]
  17. MYLANTA [Concomitant]

REACTIONS (1)
  - DYSPHONIA [None]
